FAERS Safety Report 9390732 (Version 1)
Quarter: 2013Q3

REPORT INFORMATION
  Report Type: Spontaneous
  Country: DE (occurrence: DE)
  Receive Date: 20130709
  Receipt Date: 20130709
  Transmission Date: 20140515
  Serious: Yes (Hospitalization)
  Sender: FDA-Public Use
  Company Number: DE-009507513-1307DEU003243

PATIENT
  Age: 24 Year
  Sex: Male
  Weight: 120 kg

DRUGS (2)
  1. JANUMET [Suspect]
     Indication: TYPE 2 DIABETES MELLITUS
     Dosage: 1 DF, BID
     Route: 048
     Dates: start: 201107, end: 201304
  2. AMLODIPINE [Concomitant]
     Dosage: 1 DF, QD
     Route: 048
     Dates: start: 201106

REACTIONS (1)
  - Hepatitis cholestatic [Recovered/Resolved]
